FAERS Safety Report 12482383 (Version 1)
Quarter: 2016Q2

REPORT INFORMATION
  Report Type: Spontaneous
  Country: PL (occurrence: PL)
  Receive Date: 20160620
  Receipt Date: 20160620
  Transmission Date: 20160815
  Serious: Yes (Life-Threatening, Hospitalization)
  Sender: FDA-Public Use
  Company Number: PL-SA-2016SA112904

PATIENT
  Age: 73 Year
  Sex: Male
  Weight: 68.9 kg

DRUGS (14)
  1. INSULIN [Concomitant]
     Active Substance: INSULIN NOS
     Route: 065
  2. FUROSEMID [Concomitant]
     Active Substance: FUROSEMIDE
     Route: 065
     Dates: start: 20120301
  3. LANZUL [Concomitant]
     Active Substance: LANSOPRAZOLE
     Route: 065
     Dates: start: 20120301, end: 20141215
  4. LOKREN [Concomitant]
     Active Substance: BETAXOLOL HYDROCHLORIDE
     Route: 065
     Dates: start: 20120301, end: 20141214
  5. ATORVASTATIN [Concomitant]
     Active Substance: ATORVASTATIN
     Route: 065
     Dates: start: 20120301
  6. ACENOCOUMAROL [Concomitant]
     Active Substance: ACENOCOUMAROL
     Route: 065
     Dates: start: 20140321, end: 20141215
  7. SPIRONOL [Concomitant]
     Active Substance: SPIRONOLACTONE
     Route: 065
     Dates: start: 20131227
  8. NALBUPHINE HYDROCHLORIDE. [Concomitant]
     Active Substance: NALBUPHINE HYDROCHLORIDE
     Route: 065
     Dates: start: 2005
  9. ALISKIREN [Suspect]
     Active Substance: ALISKIREN
     Indication: CARDIAC FAILURE
     Route: 048
     Dates: start: 20121015, end: 20130305
  10. KALDYUM [Concomitant]
     Active Substance: POTASSIUM CHLORIDE
     Route: 065
     Dates: start: 20140321
  11. CLEXANE [Suspect]
     Active Substance: ENOXAPARIN SODIUM
     Indication: ATRIAL FIBRILLATION
     Dosage: 2X 0C
     Route: 058
     Dates: start: 20131231
  12. TRITACE [Concomitant]
     Active Substance: RAMIPRIL
     Route: 065
     Dates: start: 20130305
  13. ATORIS [Concomitant]
     Active Substance: ATORVASTATIN CALCIUM
     Route: 065
     Dates: start: 20120301, end: 20141214
  14. OMNIC OCAS [Concomitant]
     Active Substance: TAMSULOSIN HYDROCHLORIDE
     Route: 065
     Dates: start: 2005

REACTIONS (6)
  - Empyema [Recovered/Resolved]
  - Anaemia [Unknown]
  - Pleural fistula [Unknown]
  - Cardiac failure [Unknown]
  - Gastrointestinal candidiasis [Unknown]
  - Haemorrhoids [Unknown]

NARRATIVE: CASE EVENT DATE: 201401
